FAERS Safety Report 9350564 (Version 1)
Quarter: 2013Q2

REPORT INFORMATION
  Report Type: Spontaneous
  Country: CN (occurrence: CN)
  Receive Date: 20130617
  Receipt Date: 20130617
  Transmission Date: 20140414
  Serious: Yes (Other)
  Sender: FDA-Public Use
  Company Number: CN-JNJFOC-20130605657

PATIENT
  Age: 60 Year
  Sex: Female

DRUGS (3)
  1. TYLENOL COLD [Suspect]
     Indication: NASOPHARYNGITIS
     Route: 048
     Dates: start: 20110723, end: 20120723
  2. CEFUROXIME AXETIL [Suspect]
     Indication: NASOPHARYNGITIS
     Route: 065
     Dates: start: 20110723
  3. TRADITIONAL CHINESE MEDICINE [Suspect]
     Indication: NASOPHARYNGITIS
     Route: 065
     Dates: start: 20110723

REACTIONS (6)
  - Flushing [Recovering/Resolving]
  - Vocal cord paralysis [Recovering/Resolving]
  - Dyspnoea [Recovering/Resolving]
  - Chest discomfort [Recovering/Resolving]
  - Pyrexia [Recovering/Resolving]
  - Rash [Recovered/Resolved]
